FAERS Safety Report 8301903-8 (Version None)
Quarter: 2012Q2

REPORT INFORMATION
  Report Type: 
  Country: None (occurrence: None)
  Receive Date: 20120420
  Receipt Date: 20120419
  Transmission Date: 20120825
  Serious: Yes (Death, Other)
  Sender: FDA-Public Use
  Company Number: US-ROCHE-1019949

PATIENT
  Age: 59 Year
  Sex: Male
  Weight: 101.9 kg

DRUGS (16)
  1. WARFARIN SODIUM [Concomitant]
     Indication: DEEP VEIN THROMBOSIS
     Dosage: ON MONDAY THROUGH SATURDAY
     Dates: start: 20111216
  2. METHOTREXATE [Concomitant]
     Dates: start: 20111221
  3. ZESTORETIC [Concomitant]
     Indication: HYPERTENSION
     Dates: start: 19980101
  4. MULTI-VITAMIN [Concomitant]
     Dates: start: 20080101
  5. WARFARIN SODIUM [Concomitant]
     Dosage: SUNDAY
     Dates: start: 20111216
  6. ZITHROMAX [Concomitant]
     Indication: SINUSITIS
     Dates: start: 20110209, end: 20120213
  7. AVELOX [Concomitant]
     Indication: SINUSITIS
     Route: 048
     Dates: start: 20120215
  8. PREDNISONE [Concomitant]
     Indication: RHEUMATOID ARTHRITIS
     Route: 048
     Dates: start: 19990101
  9. ASPIRIN [Concomitant]
     Indication: CARDIOVASCULAR EVENT PROPHYLAXIS
     Dates: start: 20080101
  10. LOVENOX [Concomitant]
     Indication: DEEP VEIN THROMBOSIS
     Route: 058
     Dates: start: 20111111, end: 20111125
  11. ACTEMRA [Suspect]
     Indication: RHEUMATOID ARTHRITIS
     Dosage: MOST RECENT DOSE TAKEN ON 26 OCT 2011
     Route: 058
     Dates: start: 20110803
  12. FOLIC ACID [Concomitant]
     Indication: RHEUMATOID ARTHRITIS
     Route: 048
     Dates: start: 19990101
  13. EXTRA STRENGTH TYLENOL [Concomitant]
     Indication: RHEUMATOID ARTHRITIS
     Dates: start: 20080101
  14. METHOTREXATE [Concomitant]
     Indication: RHEUMATOID ARTHRITIS
     Route: 048
     Dates: end: 20111201
  15. VIAGRA [Concomitant]
     Indication: ERECTILE DYSFUNCTION
     Dates: start: 20110715
  16. ACTEMRA [Suspect]
     Indication: RHEUMATOID ARTHRITIS
     Dosage: MOST RECENT DOSE PRIOR TO SAE: 01/FEB/2012
     Route: 058
     Dates: start: 20120118

REACTIONS (2)
  - DEEP VEIN THROMBOSIS [None]
  - ANGINA PECTORIS [None]
